FAERS Safety Report 12998698 (Version 4)
Quarter: 2017Q2

REPORT INFORMATION
  Report Type: Report from Study
  Country: CA (occurrence: CA)
  Receive Date: 20161205
  Receipt Date: 20170614
  Transmission Date: 20170830
  Serious: Yes (Hospitalization, Other)
  Sender: FDA-Public Use
  Company Number: CA-ROCHE-1860044

PATIENT
  Age: 37 Year
  Sex: Male

DRUGS (7)
  1. ZELBORAF [Suspect]
     Active Substance: VEMURAFENIB
     Route: 048
     Dates: start: 20161118
  2. COTELLIC [Suspect]
     Active Substance: COBIMETINIB
     Dosage: RESTARTED
     Route: 048
     Dates: start: 20161128, end: 2017
  3. ZELBORAF [Suspect]
     Active Substance: VEMURAFENIB
     Indication: METASTATIC MALIGNANT MELANOMA
     Route: 048
     Dates: start: 201611
  4. COTELLIC [Suspect]
     Active Substance: COBIMETINIB
     Indication: METASTATIC MALIGNANT MELANOMA
     Route: 048
     Dates: start: 201611
  5. COTELLIC [Suspect]
     Active Substance: COBIMETINIB
     Route: 048
     Dates: start: 20161118
  6. ZELBORAF [Suspect]
     Active Substance: VEMURAFENIB
     Dosage: RESTARTED
     Route: 048
     Dates: start: 20161128, end: 2017
  7. INSULIN [Concomitant]
     Active Substance: INSULIN NOS

REACTIONS (7)
  - Abdominal pain upper [Recovering/Resolving]
  - Nephritis [Unknown]
  - Pyrexia [Recovering/Resolving]
  - Rash [Recovering/Resolving]
  - Urticaria [Not Recovered/Not Resolved]
  - Hepatotoxicity [Not Recovered/Not Resolved]
  - Erythema [Not Recovered/Not Resolved]

NARRATIVE: CASE EVENT DATE: 201611
